FAERS Safety Report 11150097 (Version 1)
Quarter: 2015Q2

REPORT INFORMATION
  Report Type: Spontaneous
  Country: FR (occurrence: FR)
  Receive Date: 20150529
  Receipt Date: 20150529
  Transmission Date: 20150821
  Serious: Yes (Other)
  Sender: FDA-Public Use
  Company Number: FR-ALLERGAN-1503052US

PATIENT
  Age: 73 Year
  Sex: Female

DRUGS (1)
  1. BOTOX [Suspect]
     Active Substance: ONABOTULINUMTOXINA
     Indication: ESSENTIAL TREMOR
     Dosage: UNK, SINGLE
     Route: 030

REACTIONS (4)
  - Amyotrophic lateral sclerosis [Unknown]
  - Speech disorder [Unknown]
  - Off label use [Unknown]
  - Dysphagia [Unknown]
